FAERS Safety Report 15143646 (Version 1)
Quarter: 2018Q3

REPORT INFORMATION
  Report Type: Spontaneous
  Country: SE (occurrence: SE)
  Receive Date: 20180713
  Receipt Date: 20180713
  Transmission Date: 20181010
  Serious: Yes (Hospitalization, Other)
  Sender: FDA-Public Use
  Company Number: SE-PFIZER INC-2018277199

PATIENT
  Age: 85 Year
  Sex: Male

DRUGS (1)
  1. AMLODIPINE BESILATE [Suspect]
     Active Substance: AMLODIPINE BESYLATE
     Indication: HYPERTENSION
     Dosage: 10 MG, DAILY
     Route: 048
     Dates: start: 20180131, end: 20180525

REACTIONS (3)
  - Fluid retention [Unknown]
  - Brain stem syndrome [Unknown]
  - Diplopia [Unknown]

NARRATIVE: CASE EVENT DATE: 201805
